FAERS Safety Report 6442342-4 (Version None)
Quarter: 2009Q4

REPORT INFORMATION
  Report Type: 
  Country: None (occurrence: None)
  Receive Date: 20091112
  Receipt Date: 20091102
  Transmission Date: 20100525
  Serious: Yes (Life-Threatening, Hospitalization)
  Sender: FDA-Public Use
  Company Number: ADR46572009

PATIENT
  Age: 75 Year
  Sex: Male

DRUGS (8)
  1. SIMVASTATIN [Suspect]
     Indication: PROPHYLAXIS
     Dosage: 20 MG + 40 MG ORAL
     Route: 048
     Dates: start: 20050501, end: 20060601
  2. AMLODIPINE [Concomitant]
  3. ASPIRIN [Concomitant]
  4. BISOPROLOL [Concomitant]
  5. FRUSEMIDE [Concomitant]
  6. NITROGLYCERIN [Concomitant]
  7. RAMIPRIL [Concomitant]
  8. SPIRONOLACTONE [Concomitant]

REACTIONS (4)
  - DYSPNOEA [None]
  - EXERCISE TOLERANCE DECREASED [None]
  - LIVER FUNCTION TEST ABNORMAL [None]
  - MYOSITIS [None]
